FAERS Safety Report 8013458-6 (Version None)
Quarter: 2011Q4

REPORT INFORMATION
  Report Type: 
  Country: None (occurrence: None)
  Receive Date: 20111229
  Receipt Date: 20111227
  Transmission Date: 20120403
  Serious: No
  Sender: FDA-Public Use
  Company Number: US-TEVA-315167USA

PATIENT

DRUGS (1)
  1. PROAIR HFA [Suspect]

REACTIONS (1)
  - TONGUE DISCOLOURATION [None]
